FAERS Safety Report 15767022 (Version 4)
Quarter: 2019Q2

REPORT INFORMATION
  Report Type: Spontaneous
  Country: US (occurrence: US)
  Receive Date: 20181227
  Receipt Date: 20190411
  Transmission Date: 20190711
  Serious: Yes (Hospitalization, Other)
  Sender: FDA-Public Use
  Company Number: US-PFIZER INC-2018526437

PATIENT
  Age: 68 Year
  Sex: Female
  Weight: 97 kg

DRUGS (7)
  1. SYSTANE ULTRA [Concomitant]
     Active Substance: POLYETHYLENE GLYCOL 400\PROPYLENE GLYCOL
     Dosage: UNK
  2. LATANOPROST. [Suspect]
     Active Substance: LATANOPROST
     Indication: GLAUCOMA
     Dosage: UNK, 1X/DAY (AT NIGHT)
     Route: 047
     Dates: start: 20181213, end: 20181213
  3. LATANOPROST. [Suspect]
     Active Substance: LATANOPROST
     Indication: HERPES OPHTHALMIC
     Dosage: 20 MG, 1X/DAY
     Route: 047
     Dates: start: 20181214
  4. LATANOPROST. [Suspect]
     Active Substance: LATANOPROST
     Dosage: 2 GTT, 1X/DAY (AT BEDTIME)
     Route: 047
  5. LATANOPROST. [Suspect]
     Active Substance: LATANOPROST
     Dosage: 2 GTT, 1X/DAY (INSTILL ONE DROP INTO BOTH EYES EACH NIGHT AT BED TIME)
     Route: 047
  6. REFRESH OPTIVE [Concomitant]
     Active Substance: CARBOXYMETHYLCELLULOSE SODIUM\GLYCERIN
     Indication: DRY EYE
     Dosage: UNK
  7. REFRESH OPTIVE [Concomitant]
     Active Substance: CARBOXYMETHYLCELLULOSE SODIUM\GLYCERIN
     Indication: MUSCLE SPASMS

REACTIONS (7)
  - Blepharospasm [Not Recovered/Not Resolved]
  - Eye colour change [Not Recovered/Not Resolved]
  - Eye discharge [Not Recovered/Not Resolved]
  - Swelling [Not Recovered/Not Resolved]
  - Lacrimation increased [Unknown]
  - Eye haemorrhage [Not Recovered/Not Resolved]
  - Vision blurred [Unknown]

NARRATIVE: CASE EVENT DATE: 20181213
